FAERS Safety Report 7444601-5 (Version None)
Quarter: 2011Q2

REPORT INFORMATION
  Report Type: 
  Country: None (occurrence: None)
  Receive Date: 20110427
  Receipt Date: 20110427
  Transmission Date: 20111010
  Serious: Yes (Life-Threatening)
  Sender: FDA-Public Use
  Company Number: None

PATIENT
  Age: 55 Year
  Sex: Male
  Weight: 92.5338 kg

DRUGS (1)
  1. MIRALAX [Suspect]
     Indication: COLONOSCOPY
     Dosage: 14 DAY DOSE BOTTLE - 238 GM- PO
     Route: 048
     Dates: start: 20110411, end: 20110411

REACTIONS (7)
  - ANAPHYLACTIC REACTION [None]
  - OFF LABEL USE [None]
  - SNEEZING [None]
  - UPPER RESPIRATORY TRACT CONGESTION [None]
  - DYSPHONIA [None]
  - FLUSHING [None]
  - LIP SWELLING [None]
